FAERS Safety Report 10838868 (Version 1)
Quarter: 2015Q1

REPORT INFORMATION
  Report Type: Spontaneous
  Country: US (occurrence: None)
  Receive Date: 20150218
  Receipt Date: 20150218
  Transmission Date: 20150721
  Serious: Yes (Hospitalization)
  Sender: FDA-Public Use
  Company Number: NSR_01833_2015

PATIENT
  Age: 59 Year
  Sex: Male

DRUGS (2)
  1. TIZANIDINE (TIZANIDINE) [Suspect]
     Active Substance: TIZANIDINE
     Indication: MUSCLE RELAXANT THERAPY
     Dosage: 6 MG QD, AT BEDTIME
  2. BACLOFEN. [Suspect]
     Active Substance: BACLOFEN
     Indication: MUSCLE RELAXANT THERAPY
     Dosage: 40MG 1X/ 6 HOURS, (REGULARLY TOOK A N EXTRA 102 DOSES DAILY, TOTALING UP TO 240 MG DAILY),

REACTIONS (20)
  - Vomiting [None]
  - Extra dose administered [None]
  - Disorientation [None]
  - Nausea [None]
  - Acute kidney injury [None]
  - Intentional product misuse [None]
  - Hypophagia [None]
  - Hypotension [None]
  - Cogwheel rigidity [None]
  - Renal tubular necrosis [None]
  - Delirium [None]
  - Agitation [None]
  - Withdrawal syndrome [None]
  - Autonomic nervous system imbalance [None]
  - Confusional state [None]
  - Tachycardia [None]
  - Blood pressure increased [None]
  - Extrapyramidal disorder [None]
  - Hallucination, visual [None]
  - Drug interaction [None]
